FAERS Safety Report 22306775 (Version 1)
Quarter: 2023Q2

REPORT INFORMATION
  Report Type: Spontaneous
  Country: US (occurrence: US)
  Receive Date: 20230511
  Receipt Date: 20230511
  Transmission Date: 20230722
  Serious: Yes (Death, Other)
  Sender: FDA-Public Use
  Company Number: US-BRISTOL-MYERS SQUIBB COMPANY-2023-066552

PATIENT
  Age: 96 Year
  Sex: Female
  Weight: 55.34 kg

DRUGS (1)
  1. ELIQUIS [Suspect]
     Active Substance: APIXABAN
     Indication: Thrombosis prophylaxis
     Route: 048
     Dates: start: 2020

REACTIONS (1)
  - Ventricular fibrillation [Fatal]

NARRATIVE: CASE EVENT DATE: 20230505
